FAERS Safety Report 9418226 (Version 2)
Quarter: 2013Q3

REPORT INFORMATION
  Report Type: Spontaneous
  Country: US (occurrence: US)
  Receive Date: 20130724
  Receipt Date: 20130729
  Transmission Date: 20140515
  Serious: Yes (Hospitalization)
  Sender: FDA-Public Use
  Company Number: US-B.I. PHARMACEUTICALS,INC./RIDGEFIELD-2013-BI-21525BP

PATIENT
  Age: 66 Year
  Sex: Female

DRUGS (1)
  1. SPIRIVA [Suspect]
     Indication: EMPHYSEMA
     Dosage: 18 MCG
     Route: 055
     Dates: start: 201212

REACTIONS (4)
  - Cholelithiasis [Recovered/Resolved]
  - Dyspnoea [Recovered/Resolved]
  - Dysphonia [Not Recovered/Not Resolved]
  - Product quality issue [Unknown]
